FAERS Safety Report 10048516 (Version 1)
Quarter: 2014Q1

REPORT INFORMATION
  Report Type: Spontaneous
  Country: US (occurrence: US)
  Receive Date: 20140331
  Receipt Date: 20140331
  Transmission Date: 20141002
  Serious: No
  Sender: FDA-Public Use
  Company Number: US-B.I. PHARMACEUTICALS,INC./RIDGEFIELD-2014-BI-13655BP

PATIENT
  Age: 88 Year
  Sex: Female
  Weight: 41 kg

DRUGS (1)
  1. PRADAXA [Suspect]
     Indication: ATRIAL FIBRILLATION
     Dosage: 150 MG
     Route: 048
     Dates: start: 2012, end: 20140217

REACTIONS (2)
  - Coagulation time prolonged [Recovered/Resolved]
  - Haemorrhage [Recovered/Resolved]
